FAERS Safety Report 23416059 (Version 1)
Quarter: 2024Q1

REPORT INFORMATION
  Report Type: Spontaneous
  Country: US (occurrence: None)
  Receive Date: 20240117
  Receipt Date: 20240117
  Transmission Date: 20240410
  Serious: Yes (Death)
  Sender: FDA-Public Use
  Company Number: None

PATIENT
  Age: 95 Year
  Sex: Male
  Weight: 63.5 kg

DRUGS (26)
  1. ERLEADA [Suspect]
     Active Substance: APALUTAMIDE
     Indication: Prostate cancer
     Dosage: FREQUENCY : DAILY;?
     Route: 048
     Dates: start: 20200201, end: 20240114
  2. ALBUTEROL [Concomitant]
     Active Substance: ALBUTEROL
  3. BETAMETHASONE [Concomitant]
     Active Substance: BETAMETHASONE\BETAMETHASONE DIPROPIONATE
  4. SYMBICORT [Concomitant]
     Active Substance: BUDESONIDE\FORMOTEROL FUMARATE DIHYDRATE
  5. CALCIUM [Concomitant]
     Active Substance: CALCIUM
  6. VITAMIN D3 [Concomitant]
     Active Substance: CHOLECALCIFEROL
  7. MELOXICAM [Concomitant]
     Active Substance: MELOXICAM
  8. MOMETASONE [Concomitant]
     Active Substance: MOMETASONE
  9. VITAMINS [Concomitant]
     Active Substance: VITAMINS
  10. ALENDRONATE [Concomitant]
     Active Substance: ALENDRONATE SODIUM
  11. ALLOPURINOL [Concomitant]
     Active Substance: ALLOPURINOL
  12. DICYLCOMINE [Concomitant]
  13. LANSOPRAZOLE [Concomitant]
     Active Substance: LANSOPRAZOLE
  14. LEVOTHYROXINE [Concomitant]
     Active Substance: LEVOTHYROXINE\LEVOTHYROXINE SODIUM
  15. LOPERAMIDE [Concomitant]
     Active Substance: LOPERAMIDE
  16. FUROSEMIDE [Concomitant]
     Active Substance: FUROSEMIDE
  17. METOPROLOL [Concomitant]
     Active Substance: METOPROLOL
  18. LOSARTAN [Concomitant]
     Active Substance: LOSARTAN
  19. MONTLUKAST [Concomitant]
  20. MYRBETRIQ [Concomitant]
     Active Substance: MIRABEGRON
  21. NARCAN [Concomitant]
     Active Substance: NALOXONE HYDROCHLORIDE
  22. PENSSAID [Concomitant]
  23. PRAVASTATIN [Concomitant]
     Active Substance: PRAVASTATIN
  24. PREDNISONE [Concomitant]
     Active Substance: PREDNISONE
  25. PULMICORT TURBUHALER [Concomitant]
     Active Substance: BUDESONIDE
  26. TERAZOSIN [Concomitant]
     Active Substance: TERAZOSIN HYDROCHLORIDE

REACTIONS (1)
  - Fall [None]

NARRATIVE: CASE EVENT DATE: 20240115
